FAERS Safety Report 6601088-X (Version None)
Quarter: 2010Q1

REPORT INFORMATION
  Report Type: 
  Country: None (occurrence: None)
  Receive Date: 20100225
  Receipt Date: 20100212
  Transmission Date: 20100710
  Serious: Yes (Hospitalization)
  Sender: FDA-Public Use
  Company Number: PHHY2010CL08551

PATIENT
  Age: 79 Year
  Sex: Female

DRUGS (4)
  1. TAREG [Suspect]
     Indication: HYPERTENSION
     Dosage: 160MG, 1 DF DAILY
     Route: 065
  2. DEGRALER [Concomitant]
     Route: 065
  3. ASPIRIN [Concomitant]
     Route: 065
  4. SERTRALINE HCL [Concomitant]
     Route: 065

REACTIONS (1)
  - EYE OPERATION [None]
